FAERS Safety Report 8775381 (Version 1)
Quarter: 2012Q4

REPORT INFORMATION
  Report Type: 
  Country: GB (occurrence: GB)
  Receive Date: 20120910
  Receipt Date: 20120910
  Transmission Date: 20130627
  Serious: Yes (Hospitalization)
  Sender: FDA-Public Use
  Company Number: GB-009507513-1209GBR001942

PATIENT

DRUGS (7)
  1. ZOCOR [Suspect]
     Indication: TRANSIENT ISCHAEMIC ATTACK
     Dosage: 40 mg, UNK
     Route: 048
     Dates: start: 20111101, end: 20120810
  2. AMLODIPINE [Concomitant]
  3. ASPIRIN [Concomitant]
  4. LACTULOSE [Concomitant]
  5. OMEPRAZOLE [Concomitant]
  6. PREDNISOLONE [Concomitant]
  7. URSODIOL [Concomitant]

REACTIONS (11)
  - Cholecystitis acute [Recovering/Resolving]
  - Abdominal pain [Recovering/Resolving]
  - Blood alkaline phosphatase increased [Recovering/Resolving]
  - Alanine aminotransferase increased [Recovering/Resolving]
  - Blood bilirubin increased [Recovering/Resolving]
  - Blood creatine phosphokinase increased [Recovering/Resolving]
  - Gamma-glutamyltransferase increased [Recovering/Resolving]
  - Jaundice [Recovering/Resolving]
  - Muscular weakness [Recovering/Resolving]
  - Myalgia [Recovering/Resolving]
  - Myositis [Recovering/Resolving]
